FAERS Safety Report 5293534-1 (Version None)
Quarter: 2007Q2

REPORT INFORMATION
  Report Type: 
  Country: None (occurrence: None)
  Receive Date: 20070411
  Receipt Date: 20070404
  Transmission Date: 20071010
  Serious: Yes (Disabling)
  Sender: FDA-Public Use
  Company Number: FR-GLAXOSMITHKLINE-B0465377A

PATIENT
  Age: 2 Year
  Sex: Female

DRUGS (10)
  1. ULTIVA [Suspect]
     Indication: GENERAL ANAESTHESIA
     Dosage: 500G PER DAY
     Route: 042
     Dates: start: 20070216, end: 20070216
  2. AUGMENTIN '125' [Suspect]
     Indication: ANTIBIOTIC PROPHYLAXIS
     Route: 042
     Dates: start: 20070216, end: 20070216
  3. KETAMINE HCL [Suspect]
     Dosage: 1.5MG PER DAY
     Route: 042
     Dates: start: 20070216, end: 20070216
  4. PERFALGAN [Suspect]
     Dosage: 250MG PER DAY
     Route: 042
     Dates: start: 20070216, end: 20070216
  5. HYPNOVEL [Suspect]
     Dosage: 3MG PER DAY
     Route: 054
     Dates: start: 20070216, end: 20070216
  6. MINI-SINTROM [Suspect]
     Dosage: .25MG PER DAY
     Route: 048
     Dates: start: 20060615
  7. MORPHINE [Concomitant]
     Dosage: 3MG PER DAY
     Dates: start: 20070216
  8. ZOPHREN [Concomitant]
     Dosage: 2MG PER DAY
     Dates: start: 20070216
  9. NUBAIN [Concomitant]
     Dosage: 3MG PER DAY
     Dates: start: 20070216
  10. DOLIPRANE [Concomitant]
     Dosage: 225MG TWICE PER DAY
     Dates: start: 20070216

REACTIONS (5)
  - BLOODY DISCHARGE [None]
  - COAGULATION TIME PROLONGED [None]
  - DRUG INTERACTION [None]
  - INTERNATIONAL NORMALISED RATIO INCREASED [None]
  - KAOLIN CEPHALIN CLOTTING TIME PROLONGED [None]
